FAERS Safety Report 9119279 (Version 1)
Quarter: 2013Q1

REPORT INFORMATION
  Report Type: Spontaneous
  Country: AT (occurrence: None)
  Receive Date: 20130130
  Receipt Date: 20130130
  Transmission Date: 20140127
  Serious: Yes (Other)
  Sender: FDA-Public Use
  Company Number: ENTC2013-0023

PATIENT
  Sex: Male

DRUGS (1)
  1. STALEVO [Suspect]
     Dosage: STOPPED

REACTIONS (2)
  - Arrhythmia [None]
  - Syncope [None]
